FAERS Safety Report 17392566 (Version 2)
Quarter: 2020Q1

REPORT INFORMATION
  Report Type: Report from Study
  Country: US (occurrence: US)
  Receive Date: 20200207
  Receipt Date: 20200320
  Transmission Date: 20200409
  Serious: Yes (Death, Hospitalization)
  Sender: FDA-Public Use
  Company Number: NVSC2020US031890

PATIENT
  Age: 94 Year
  Sex: Male
  Weight: 70 kg

DRUGS (1)
  1. ENTRESTO [Suspect]
     Active Substance: SACUBITRIL\VALSARTAN
     Indication: PRODUCT USED FOR UNKNOWN INDICATION
     Dosage: UNK
     Route: 065

REACTIONS (5)
  - Respiratory failure [Fatal]
  - Organ failure [Fatal]
  - Respiratory distress [Unknown]
  - Condition aggravated [Unknown]
  - Pneumonia [Fatal]

NARRATIVE: CASE EVENT DATE: 20190703
